FAERS Safety Report 19550060 (Version 2)
Quarter: 2021Q3

REPORT INFORMATION
  Report Type: Other
  Country: US (occurrence: US)
  Receive Date: 20210715
  Receipt Date: 20210729
  Transmission Date: 20211014
  Serious: Yes (Hospitalization, Other)
  Sender: FDA-Public Use
  Company Number: US-ROCHE-2862711

PATIENT
  Age: 73 Year
  Sex: Female
  Weight: 72.19 kg

DRUGS (5)
  1. TIZANIDINE. [Concomitant]
     Active Substance: TIZANIDINE
  2. METHOTREXATE. [Concomitant]
     Active Substance: METHOTREXATE
     Dates: start: 2020, end: 2020
  3. PREDNISONE. [Concomitant]
     Active Substance: PREDNISONE
     Dosage: UP TO 30 OR 40MG
     Dates: start: 2020, end: 2020
  4. OCREVUS [Suspect]
     Active Substance: OCRELIZUMAB
     Indication: RELAPSING-REMITTING MULTIPLE SCLEROSIS
     Dosage: DATE OF TREATMENT:30/AUG/2018, 20/SEP/2018, 07/MAR/2019, 05/SEP/2019, 20/MAR/2020, 16/SEP/2020, 01/M
     Route: 042
     Dates: start: 201803
  5. AMINOPYRIDINE [Concomitant]
     Active Substance: DALFAMPRIDINE
     Dates: start: 202106

REACTIONS (18)
  - Foot operation [Unknown]
  - Foot fracture [Unknown]
  - Confusional state [Recovered/Resolved]
  - Dyspnoea [Unknown]
  - Weight decreased [Recovered/Resolved]
  - Pneumonia [Unknown]
  - Skin laceration [Recovered/Resolved]
  - Muscular weakness [Unknown]
  - Joint injury [Unknown]
  - Vomiting [Recovered/Resolved]
  - Tendon rupture [Unknown]
  - Pain [Unknown]
  - Pain of skin [Recovered/Resolved]
  - Headache [Recovered/Resolved]
  - Diverticulitis [Recovered/Resolved]
  - Dyskinesia [Recovered/Resolved]
  - Dupuytren^s contracture [Unknown]
  - Vision blurred [Recovered/Resolved]

NARRATIVE: CASE EVENT DATE: 201811
